FAERS Safety Report 23675784 (Version 1)
Quarter: 2024Q1

REPORT INFORMATION
  Report Type: Spontaneous
  Country: JP (occurrence: JP)
  Receive Date: 20240327
  Receipt Date: 20240327
  Transmission Date: 20240409
  Serious: Yes (Other)
  Sender: FDA-Public Use
  Company Number: JP-002147023-NVSJ2024JP003600

PATIENT
  Age: 56 Year
  Sex: Male

DRUGS (2)
  1. NILOTINIB [Suspect]
     Active Substance: NILOTINIB
     Indication: Chronic myeloid leukaemia
     Dosage: 150 MG
     Route: 048
  2. IMATINIB [Suspect]
     Active Substance: IMATINIB
     Indication: Chronic myeloid leukaemia
     Dosage: 400 MG
     Route: 048

REACTIONS (5)
  - Congenital cystic kidney disease [Unknown]
  - Renal impairment [Unknown]
  - Glomerular filtration rate decreased [Unknown]
  - Full blood count decreased [Unknown]
  - Hypertension [Unknown]
